FAERS Safety Report 4597819-3 (Version None)
Quarter: 2005Q1

REPORT INFORMATION
  Report Type: 
  Country: None (occurrence: None)
  Receive Date: 20050301
  Receipt Date: 20050126
  Transmission Date: 20050727
  Serious: Yes (Other)
  Sender: FDA-Public Use
  Company Number: GBR-2005-0001484

PATIENT
  Age: 40 Year
  Sex: Male

DRUGS (4)
  1. DIHYDROCODEINE BITARTRATE INJ [Suspect]
     Dosage: 270 MG,
  2. FENTANYL [Suspect]
     Dosage: 50 MCG, TRANSDERMAL
     Route: 062
  3. DIAZEPAM [Suspect]
  4. ALCOHOL [Concomitant]

REACTIONS (3)
  - HALLUCINATION [None]
  - INTENTIONAL SELF-INJURY [None]
  - WOUND [None]
